FAERS Safety Report 12845354 (Version 1)
Quarter: 2016Q4

REPORT INFORMATION
  Report Type: Spontaneous
  Country: US (occurrence: US)
  Receive Date: 20161013
  Receipt Date: 20161013
  Transmission Date: 20170207
  Serious: No
  Sender: FDA-Public Use
  Company Number: US-JAZZ-JPI-P-025518

PATIENT
  Age: 33 Year
  Sex: Female
  Weight: 58.18 kg

DRUGS (7)
  1. XYREM [Suspect]
     Active Substance: SODIUM OXYBATE
     Dosage: SINGLE (6 G AS 1ST DOSE AND 3 G AS 2ND DOSE)
     Route: 048
  2. KLONOPIN [Concomitant]
     Active Substance: CLONAZEPAM
  3. XYREM [Suspect]
     Active Substance: SODIUM OXYBATE
     Indication: CATAPLEXY
     Route: 048
     Dates: start: 20111117, end: 2011
  4. XYREM [Suspect]
     Active Substance: SODIUM OXYBATE
     Indication: NARCOLEPSY
     Dosage: UNKNOWN, SINGLE
     Route: 048
     Dates: start: 2011, end: 20111220
  5. XYREM [Suspect]
     Active Substance: SODIUM OXYBATE
     Dosage: 4.5 G, BID
     Route: 048
     Dates: start: 201209
  6. XYREM [Suspect]
     Active Substance: SODIUM OXYBATE
     Dosage: 4.5 G, BID
     Route: 048
     Dates: start: 20111221, end: 20120920
  7. FLEXERIL [Concomitant]
     Active Substance: CYCLOBENZAPRINE HYDROCHLORIDE

REACTIONS (10)
  - Back injury [Recovering/Resolving]
  - Spondylitis [Not Recovered/Not Resolved]
  - Malabsorption [Not Recovered/Not Resolved]
  - Scoliosis [Not Recovered/Not Resolved]
  - Back pain [Not Recovered/Not Resolved]
  - Intervertebral disc disorder [Recovering/Resolving]
  - Insomnia [Not Recovered/Not Resolved]
  - Insomnia [Recovered/Resolved]
  - Poor quality sleep [Not Recovered/Not Resolved]
  - Migraine [Recovering/Resolving]

NARRATIVE: CASE EVENT DATE: 201111
